FAERS Safety Report 5103608-3 (Version None)
Quarter: 2006Q3

REPORT INFORMATION
  Report Type: 
  Country: None (occurrence: None)
  Receive Date: 20060911
  Receipt Date: 20060911
  Transmission Date: 20061208
  Serious: Yes (Life-Threatening, Other)
  Sender: FDA-Public Use
  Company Number: None

PATIENT
  Age: 59 Year
  Sex: Male
  Weight: 113.3993 kg

DRUGS (3)
  1. NEURONTIN [Suspect]
     Indication: INJURY
     Dosage: 800MG   3TIMES A DAY   PO
     Route: 048
     Dates: start: 19940101, end: 20040210
  2. NEURONTIN [Suspect]
     Indication: NEURALGIA
     Dosage: 800MG   3TIMES A DAY   PO
     Route: 048
     Dates: start: 19940101, end: 20040210
  3. NEURONTIN [Suspect]
     Indication: SPINAL DISORDER
     Dosage: 800MG   3TIMES A DAY   PO
     Route: 048
     Dates: start: 19940101, end: 20040210

REACTIONS (2)
  - AMYOTROPHIC LATERAL SCLEROSIS [None]
  - MOTOR DYSFUNCTION [None]
